FAERS Safety Report 4715838-0 (Version None)
Quarter: 2005Q3

REPORT INFORMATION
  Report Type: 
  Country: None (occurrence: None)
  Receive Date: 20050715
  Receipt Date: 20050715
  Transmission Date: 20060218
  Serious: Yes (Other)
  Sender: FDA-Public Use
  Company Number: None

PATIENT
  Age: 53 Year
  Sex: Male
  Weight: 68.0396 kg

DRUGS (2)
  1. EFFEXOR [Suspect]
     Indication: ANXIETY
     Dosage: 1 DAY ORAL
     Route: 048
     Dates: start: 20040601, end: 20050212
  2. EFFEXOR [Suspect]
     Indication: DEPRESSION
     Dosage: 1 DAY ORAL
     Route: 048
     Dates: start: 20040601, end: 20050212

REACTIONS (1)
  - SUICIDAL IDEATION [None]
